FAERS Safety Report 4799781-7 (Version None)
Quarter: 2005Q4

REPORT INFORMATION
  Report Type: 
  Country: None (occurrence: None)
  Receive Date: 20051012
  Receipt Date: 20051012
  Transmission Date: 20060501
  Serious: Yes (Hospitalization)
  Sender: FDA-Public Use
  Company Number: None

PATIENT
  Sex: Male
  Weight: 99.7913 kg

DRUGS (8)
  1. AVANDIA [Suspect]
     Indication: DIABETES MELLITUS
     Dosage: PO (THERAPY DATES: PRIOR TO ADMISSION)
     Route: 048
  2. AMARYL [Suspect]
     Indication: DIABETES MELLITUS
     Dosage: PO (THERAPY DATES: PRIOR TO ADMISSION)
     Route: 048
  3. ALLEGRA [Concomitant]
  4. LASIX [Concomitant]
  5. DIGITEK [Concomitant]
  6. ALTACE [Concomitant]
  7. LOPRESSOR [Concomitant]
  8. COUMADIN [Concomitant]

REACTIONS (2)
  - BLOOD GLUCOSE DECREASED [None]
  - LOSS OF CONSCIOUSNESS [None]
